FAERS Safety Report 6334888-4 (Version None)
Quarter: 2009Q3

REPORT INFORMATION
  Report Type: 
  Country: None (occurrence: None)
  Receive Date: 20090828
  Receipt Date: 20090828
  Transmission Date: 20100115
  Serious: No
  Sender: FDA-Public Use
  Company Number: None

PATIENT

DRUGS (1)
  1. LYRICA [Suspect]

REACTIONS (6)
  - DIABETES MELLITUS [None]
  - DRUG EFFECT DECREASED [None]
  - HYPERTENSION [None]
  - INTESTINAL OBSTRUCTION [None]
  - PAIN IN EXTREMITY [None]
  - WEIGHT INCREASED [None]
